FAERS Safety Report 26111808 (Version 1)
Quarter: 2025Q4

REPORT INFORMATION
  Report Type: Spontaneous
  Country: US (occurrence: US)
  Receive Date: 20251202
  Receipt Date: 20251202
  Transmission Date: 20260117
  Serious: Yes (Life-Threatening, Hospitalization)
  Sender: NOVARTIS
  Company Number: US-002147023-NVSC2025US184182

PATIENT
  Age: 63 Year
  Sex: Female

DRUGS (6)
  1. OCTREOTIDE [Suspect]
     Active Substance: OCTREOTIDE
     Indication: Hypoglycaemia
     Dosage: 20 MG, QMO (20MG LAR)
     Route: 065
  2. OCTREOTIDE [Suspect]
     Active Substance: OCTREOTIDE
     Dosage: UNK (DOSE INCREASED 30MG LAR)
     Route: 065
  3. OCTREOTIDE [Suspect]
     Active Substance: OCTREOTIDE
  4. DIAZOXIDE [Suspect]
     Active Substance: DIAZOXIDE
     Indication: Hypoglycaemia
     Dosage: 3 MG/KG, QD
     Route: 065
  5. DIAZOXIDE [Suspect]
     Active Substance: DIAZOXIDE
     Dosage: 100 MG, Q8H (DOSE INCREASED)
     Route: 065
  6. DIAZOXIDE [Suspect]
     Active Substance: DIAZOXIDE
     Dosage: 8 MG/KG, QD (TITRATED TO)
     Route: 065

REACTIONS (1)
  - Respiratory distress [Unknown]
